FAERS Safety Report 9406079 (Version 1)
Quarter: 2013Q3

REPORT INFORMATION
  Report Type: Spontaneous
  Country: US (occurrence: US)
  Receive Date: 20130717
  Receipt Date: 20130717
  Transmission Date: 20140515
  Serious: Yes (Other)
  Sender: FDA-Public Use
  Company Number: US-PFIZER INC-2013210056

PATIENT
  Age: 83 Year
  Sex: Female
  Weight: 63.95 kg

DRUGS (4)
  1. TOVIAZ [Suspect]
     Indication: HYPERTONIC BLADDER
     Dosage: UNK, 1X/DAY
     Route: 048
     Dates: start: 20130617, end: 20130630
  2. METOPROLOL [Concomitant]
     Indication: HYPERTENSION
     Dosage: UNK
  3. LEXAPRO [Concomitant]
     Dosage: UNK
  4. CRESTOR [Concomitant]
     Indication: BLOOD CHOLESTEROL INCREASED
     Dosage: UNK

REACTIONS (5)
  - Dyspnoea [Not Recovered/Not Resolved]
  - Blood cholesterol increased [Not Recovered/Not Resolved]
  - Weight increased [Recovered/Resolved]
  - Fluid retention [Recovered/Resolved]
  - Weight loss poor [Not Recovered/Not Resolved]
